FAERS Safety Report 21628172 (Version 3)
Quarter: 2022Q4

REPORT INFORMATION
  Report Type: Spontaneous
  Country: GB (occurrence: GB)
  Receive Date: 20221122
  Receipt Date: 20221228
  Transmission Date: 20230113
  Serious: No
  Sender: FDA-Public Use
  Company Number: GB-PFIZER INC-PV202200104906

PATIENT
  Age: 18 Year
  Sex: Female

DRUGS (1)
  1. GENOTROPIN [Suspect]
     Active Substance: SOMATROPIN
     Indication: Prader-Willi syndrome
     Dosage: 1.2 MG

REACTIONS (3)
  - Circumstance or information capable of leading to medication error [Unknown]
  - Device breakage [Unknown]
  - Device physical property issue [Unknown]
